FAERS Safety Report 16867235 (Version 3)
Quarter: 2021Q1

REPORT INFORMATION
  Report Type: Spontaneous
  Country: US (occurrence: US)
  Receive Date: 20190930
  Receipt Date: 20210315
  Transmission Date: 20210419
  Serious: Yes (Other)
  Sender: FDA-Public Use
  Company Number: US-BAYER-2019-176556

PATIENT
  Age: 57 Year
  Sex: Female

DRUGS (6)
  1. SUMATRIPTAN. [Interacting]
     Active Substance: SUMATRIPTAN
     Dosage: UNK
  2. VENLAFAXINE [Concomitant]
     Active Substance: VENLAFAXINE HYDROCHLORIDE
     Dosage: UNK
  3. ACETYLSALICYLIC ACID (CARDIO) [Suspect]
     Active Substance: ASPIRIN
     Dosage: UNK
  4. ENALAPRIL [Concomitant]
     Active Substance: ENALAPRIL
     Dosage: UNK
  5. ESTRADIOL. [Suspect]
     Active Substance: ESTRADIOL
  6. ATORVASTATIN [Concomitant]
     Active Substance: ATORVASTATIN
     Dosage: UNK

REACTIONS (3)
  - Potentiating drug interaction [None]
  - Lower gastrointestinal haemorrhage [Recovered/Resolved]
  - Colitis ischaemic [Recovered/Resolved]
